FAERS Safety Report 9224352 (Version 1)
Quarter: 2013Q2

REPORT INFORMATION
  Report Type: Spontaneous
  Country: US (occurrence: None)
  Receive Date: 20130409
  Receipt Date: 20130409
  Transmission Date: 20140414
  Serious: Yes (Hospitalization)
  Sender: FDA-Public Use
  Company Number: None

PATIENT
  Age: 62 Year
  Sex: Female
  Weight: 58.97 kg

DRUGS (5)
  1. FOSAMAX [Suspect]
     Indication: OSTEOPOROSIS
     Route: 042
     Dates: start: 1997
  2. DIDRONEL [Suspect]
     Indication: OSTEOPENIA
  3. ACTONEL [Suspect]
     Dates: start: 1997, end: 2000
  4. AREDIA [Suspect]
     Dates: start: 2000, end: 2011
  5. RECLAST [Suspect]
     Dates: start: 2000, end: 2011

REACTIONS (7)
  - Femur fracture [None]
  - Rib fracture [None]
  - Patella fracture [None]
  - Fall [None]
  - Tibia fracture [None]
  - Fracture [None]
  - Femur fracture [None]
